FAERS Safety Report 6527499-9 (Version None)
Quarter: 2010Q1

REPORT INFORMATION
  Report Type: 
  Country: None (occurrence: None)
  Receive Date: 20100105
  Receipt Date: 20091231
  Transmission Date: 20100710
  Serious: Yes (Other)
  Sender: FDA-Public Use
  Company Number: ES-ROXANE LABORATORIES, INC.-2009-RO-01297RO

PATIENT
  Age: 48 Year

DRUGS (2)
  1. LITHIUM CARBONATE [Suspect]
     Indication: BIPOLAR DISORDER
  2. CALCIUM ANTAGONISTS [Concomitant]
     Indication: IGA NEPHROPATHY

REACTIONS (3)
  - IGA NEPHROPATHY [None]
  - NEPHROTIC SYNDROME [None]
  - RENAL FAILURE [None]
